FAERS Safety Report 9095649 (Version 1)
Quarter: 2013Q1

REPORT INFORMATION
  Report Type: Spontaneous
  Country: US (occurrence: None)
  Receive Date: 20130122
  Receipt Date: 20130122
  Transmission Date: 20140127
  Serious: Yes (Other)
  Sender: FDA-Public Use
  Company Number: 1098253

PATIENT
  Age: 66 Year
  Sex: Female

DRUGS (1)
  1. C.O. BIGELOW / ALL-IN-ONE PROTECTIVE DAY LOTION SPF 25 (NORMAL TO OILY [Suspect]
     Dosage: TOPICAL APPLICATION X1
     Route: 061
     Dates: start: 20121231

REACTIONS (4)
  - Swelling face [None]
  - Erythema [None]
  - Pruritus [None]
  - Burning sensation [None]
